FAERS Safety Report 21311245 (Version 1)
Quarter: 2022Q3

REPORT INFORMATION
  Report Type: Spontaneous
  Country: US (occurrence: None)
  Receive Date: 20220909
  Receipt Date: 20220909
  Transmission Date: 20221026
  Serious: No
  Sender: FDA-Public Use
  Company Number: US-FARMAPROD-202202-0266

PATIENT
  Sex: Female

DRUGS (9)
  1. OXERVATE [Suspect]
     Active Substance: CENEGERMIN-BKBJ
     Indication: Neurotrophic keratopathy
     Route: 047
     Dates: start: 20220105
  2. PRED FORTE [Concomitant]
     Active Substance: PREDNISOLONE ACETATE
  3. MAXALT [Concomitant]
     Active Substance: RIZATRIPTAN BENZOATE
  4. KLONOPIN [Concomitant]
     Active Substance: CLONAZEPAM
  5. PROPRANOLOL HYDROCHLORIDE [Concomitant]
     Active Substance: PROPRANOLOL HYDROCHLORIDE
     Dosage: EXTENDED RELEASE
  6. ACYCLOVIR [Concomitant]
     Active Substance: ACYCLOVIR
  7. VALTREX [Concomitant]
     Active Substance: VALACYCLOVIR HYDROCHLORIDE
  8. EFFEXOR XR [Concomitant]
     Active Substance: VENLAFAXINE HYDROCHLORIDE
     Dosage: SUSTAINED RELEASE
  9. ESTRADIOL [Concomitant]
     Active Substance: ESTRADIOL

REACTIONS (1)
  - Hypersensitivity [Unknown]
